FAERS Safety Report 8069794-0 (Version None)
Quarter: 2012Q1

REPORT INFORMATION
  Report Type: 
  Country: None (occurrence: None)
  Receive Date: 20120125
  Receipt Date: 20120120
  Transmission Date: 20120608
  Serious: Yes (Other)
  Sender: FDA-Public Use
  Company Number: US-PFIZER INC-2012017444

PATIENT
  Sex: Female
  Weight: 68.027 kg

DRUGS (10)
  1. CHANTIX [Suspect]
     Dosage: UNK
     Dates: start: 20120102
  2. NORVASC [Concomitant]
     Indication: HYPERTENSION
     Dosage: UNK
  3. SYNTHROID [Concomitant]
     Indication: HYPOTHYROIDISM
     Dosage: UNK
  4. LAMICTAL [Concomitant]
     Dosage: UNK
  5. CHANTIX [Suspect]
     Indication: SMOKING CESSATION THERAPY
     Dosage: 0.5 MG, 1X/DAY
     Route: 048
  6. ADVAIR DISKUS 100/50 [Concomitant]
     Dosage: UNK
  7. ALBUTEROL [Concomitant]
     Dosage: UNK
  8. NEXIUM [Concomitant]
     Indication: GASTROOESOPHAGEAL REFLUX DISEASE
     Dosage: UNK
  9. ALAVERT [Concomitant]
     Dosage: UNK, AS NEEDED
  10. LEXAPRO [Concomitant]
     Indication: DEPRESSION
     Dosage: 20 MG, UNK

REACTIONS (1)
  - DEPRESSION [None]
